FAERS Safety Report 7486555-1 (Version None)
Quarter: 2011Q2

REPORT INFORMATION
  Report Type: 
  Country: None (occurrence: None)
  Receive Date: 20110517
  Receipt Date: 20110516
  Transmission Date: 20111010
  Serious: Yes (Hospitalization, Other)
  Sender: FDA-Public Use
  Company Number: US-PFIZER INC-2011104998

PATIENT
  Sex: Female
  Weight: 78 kg

DRUGS (10)
  1. CHANTIX [Suspect]
     Dosage: 0.5 MG, 1X/DAY
     Dates: start: 20110513
  2. VITAMIN D [Concomitant]
     Dosage: UNK
  3. CHANTIX [Suspect]
     Dosage: 1 MG, 2X/DAY
     Dates: start: 20090101, end: 20090101
  4. LEVAQUIN [Suspect]
     Indication: OSTEOMYELITIS
     Dosage: UNK
     Dates: end: 20110415
  5. LEVAQUIN [Suspect]
     Indication: CELLULITIS
  6. AVELOX [Suspect]
     Indication: OSTEOMYELITIS
     Dosage: UNK
     Dates: end: 20110415
  7. CALCIUM [Concomitant]
     Dosage: UNK
  8. CHANTIX [Suspect]
     Indication: SMOKING CESSATION THERAPY
     Dosage: 0.5 MG, 1X/DAY
     Route: 048
     Dates: start: 20090101, end: 20090101
  9. FEMARA [Concomitant]
     Indication: BREAST CANCER FEMALE
     Dosage: 25 MG, DAILY
     Route: 048
  10. AVELOX [Suspect]
     Indication: CELLULITIS

REACTIONS (4)
  - LIMB OPERATION [None]
  - HEART RATE INCREASED [None]
  - DIZZINESS [None]
  - ABDOMINAL PAIN UPPER [None]
